FAERS Safety Report 6048371-7 (Version None)
Quarter: 2009Q1

REPORT INFORMATION
  Report Type: 
  Country: None (occurrence: None)
  Receive Date: 20090123
  Receipt Date: 20090114
  Transmission Date: 20090719
  Serious: Yes (Hospitalization, Other)
  Sender: FDA-Public Use
  Company Number: JP-PFIZER INC-2008155338

PATIENT

DRUGS (1)
  1. SALAZOPYRIN [Suspect]
     Indication: COLITIS ULCERATIVE
     Dosage: UNK
     Route: 048
     Dates: end: 20081215

REACTIONS (2)
  - CEREBRAL INFARCTION [None]
  - RHABDOMYOLYSIS [None]
